FAERS Safety Report 22987324 (Version 2)
Quarter: 2023Q4

REPORT INFORMATION
  Report Type: Report from Study
  Country: US (occurrence: US)
  Receive Date: 20230926
  Receipt Date: 20231226
  Transmission Date: 20240110
  Serious: Yes (Other)
  Sender: FDA-Public Use
  Company Number: US-ABBVIE-5420034

PATIENT
  Sex: Female

DRUGS (2)
  1. IMBRUVICA [Suspect]
     Active Substance: IBRUTINIB
     Indication: Chronic lymphocytic leukaemia
     Route: 048
     Dates: start: 20171109
  2. IMBRUVICA [Suspect]
     Active Substance: IBRUTINIB
     Indication: Chronic lymphocytic leukaemia
     Dosage: END DATE 2017
     Route: 048
     Dates: start: 201702

REACTIONS (6)
  - Spinal fracture [Unknown]
  - Cardiac disorder [Unknown]
  - Arthritis [Unknown]
  - Depressed mood [Unknown]
  - Social problem [Unknown]
  - Impaired work ability [Unknown]

NARRATIVE: CASE EVENT DATE: 20220101
